FAERS Safety Report 8560529-1 (Version None)
Quarter: 2012Q3

REPORT INFORMATION
  Report Type: 
  Country: None (occurrence: None)
  Receive Date: 20120802
  Receipt Date: 20120706
  Transmission Date: 20120928
  Serious: No
  Sender: FDA-Public Use
  Company Number: US-ASTRAZENECA-2012SE43356

PATIENT
  Age: 37 Year
  Sex: Female
  Weight: 63.5 kg

DRUGS (7)
  1. COGENTIN [Concomitant]
     Indication: MUSCLE RELAXANT THERAPY
  2. SEROQUEL [Interacting]
     Route: 048
  3. SELEGILINE [Interacting]
     Route: 050
  4. SEROQUEL [Interacting]
     Route: 048
  5. SEROQUEL [Suspect]
     Indication: BIPOLAR I DISORDER
     Route: 048
     Dates: start: 20000101
  6. SEROQUEL [Interacting]
     Route: 048
  7. BECLOFEN [Concomitant]
     Indication: MUSCLE RELAXANT THERAPY
     Dosage: PRN

REACTIONS (15)
  - SHOULDER DEFORMITY [None]
  - DRUG INTERACTION [None]
  - NECK PAIN [None]
  - THROAT TIGHTNESS [None]
  - BACK DISORDER [None]
  - SPORTS INJURY [None]
  - ROAD TRAFFIC ACCIDENT [None]
  - MUSCLE SPASMS [None]
  - OFF LABEL USE [None]
  - DYSTONIA [None]
  - POSTURE ABNORMAL [None]
  - MUSCULOSKELETAL STIFFNESS [None]
  - DEPRESSION [None]
  - POST-TRAUMATIC NECK SYNDROME [None]
  - DRUG DOSE OMISSION [None]
